FAERS Safety Report 18754998 (Version 1)
Quarter: 2021Q1

REPORT INFORMATION
  Report Type: Spontaneous
  Country: US (occurrence: US)
  Receive Date: 20210115
  Receipt Date: 20210115
  Transmission Date: 20210419
  Serious: Yes (Hospitalization)
  Sender: FDA-Public Use
  Company Number: None

PATIENT
  Sex: Male
  Weight: 59 kg

DRUGS (3)
  1. LEUCOVORIN CALCIUM. [Suspect]
     Active Substance: LEUCOVORIN CALCIUM
     Dates: end: 20191217
  2. ELOXATIN [Suspect]
     Active Substance: OXALIPLATIN
     Dates: end: 20191217
  3. 5?FLUOROURACIL (5?FU) (19893) [Suspect]
     Active Substance: FLUOROURACIL
     Dates: end: 20191219

REACTIONS (7)
  - Arthralgia [None]
  - Atelectasis [None]
  - Pulmonary embolism [None]
  - Pneumonia [None]
  - Pleuritic pain [None]
  - White blood cell count abnormal [None]
  - Lung opacity [None]

NARRATIVE: CASE EVENT DATE: 20191223
